FAERS Safety Report 16958291 (Version 1)
Quarter: 2019Q4

REPORT INFORMATION
  Report Type: Report from Study
  Country: US (occurrence: US)
  Receive Date: 20191024
  Receipt Date: 20191024
  Transmission Date: 20200122
  Serious: Yes (Hospitalization)
  Sender: FDA-Public Use
  Company Number: US-BAYER-2019-190078

PATIENT
  Sex: Male
  Weight: 117.91 kg

DRUGS (3)
  1. UPTRAVI [Concomitant]
     Active Substance: SELEXIPAG
     Dosage: UNK
  2. ADEMPAS [Suspect]
     Active Substance: RIOCIGUAT
     Indication: PULMONARY ARTERIAL HYPERTENSION
     Dosage: 1 MG, TID
     Route: 048
  3. OPSUMIT [Concomitant]
     Active Substance: MACITENTAN
     Dosage: UNK

REACTIONS (4)
  - Dizziness [Unknown]
  - Abdominal discomfort [Unknown]
  - Headache [Unknown]
  - Hospitalisation [Unknown]
